FAERS Safety Report 10899461 (Version 1)
Quarter: 2015Q1

REPORT INFORMATION
  Report Type: Spontaneous
  Country: US (occurrence: US)
  Receive Date: 20150309
  Receipt Date: 20150309
  Transmission Date: 20150721
  Serious: Yes (Other)
  Sender: FDA-Public Use
  Company Number: US-ABBVIE-15P-163-1355095-00

PATIENT
  Sex: Female

DRUGS (10)
  1. CIOFOTRAN [Concomitant]
     Indication: DIARRHOEA
     Route: 065
  2. SYNTHROID [Suspect]
     Active Substance: LEVOTHYROXINE SODIUM
     Indication: HYPOTHYROIDISM
     Route: 065
  3. SYNTHROID [Suspect]
     Active Substance: LEVOTHYROXINE SODIUM
     Indication: OSTEOPENIA
  4. METROTOZINAL [Concomitant]
     Indication: DIARRHOEA
     Route: 065
  5. VSL#3 [Concomitant]
     Active Substance: PROBIOTICS NOS
     Indication: DIARRHOEA
     Route: 065
  6. CREON [Suspect]
     Active Substance: PANCRELIPASE AMYLASE\PANCRELIPASE LIPASE\PANCRELIPASE PROTEASE
     Indication: GASTROINTESTINAL BACTERIAL INFECTION
     Dosage: 2 CAPSULES 3 X DAY
     Route: 065
  7. KEPPRA [Concomitant]
     Active Substance: LEVETIRACETAM
     Indication: COGNITIVE DISORDER
     Route: 065
  8. SYNTHROID [Suspect]
     Active Substance: LEVOTHYROXINE SODIUM
     Indication: MENIERE^S DISEASE
  9. BABY ASPIRIN [Concomitant]
     Active Substance: ASPIRIN
     Indication: COGNITIVE DISORDER
     Route: 065
  10. DONEPEZIL [Concomitant]
     Active Substance: DONEPEZIL
     Indication: COGNITIVE DISORDER
     Route: 065

REACTIONS (6)
  - Dyspepsia [Unknown]
  - Flatulence [Unknown]
  - Muscle spasms [Unknown]
  - Eructation [Unknown]
  - Asthenia [Unknown]
  - Diarrhoea [Unknown]
